FAERS Safety Report 6996919-8 (Version None)
Quarter: 2010Q3

REPORT INFORMATION
  Report Type: 
  Country: None (occurrence: None)
  Receive Date: 20100918
  Receipt Date: 20090805
  Transmission Date: 20110219
  Serious: No
  Sender: FDA-Public Use
  Company Number: US-WYE-H10477009

PATIENT
  Sex: Female
  Weight: 77.18 kg

DRUGS (4)
  1. EFFEXOR XR [Suspect]
     Indication: DEPRESSION
     Route: 048
  2. AMLODIPINE [Concomitant]
  3. SIMVASTATIN [Concomitant]
  4. CLONIDINE [Concomitant]

REACTIONS (3)
  - AGGRESSION [None]
  - DRUG EFFECT DECREASED [None]
  - NEGATIVISM [None]
